FAERS Safety Report 17170561 (Version 5)
Quarter: 2020Q3

REPORT INFORMATION
  Report Type: Report from Study
  Country: HK (occurrence: HK)
  Receive Date: 20191218
  Receipt Date: 20200806
  Transmission Date: 20201105
  Serious: Yes (Other)
  Sender: FDA-Public Use
  Company Number: HK-PFIZER INC-2019539635

PATIENT
  Age: 30 Year
  Sex: Female
  Weight: 39.7 kg

DRUGS (1)
  1. TALAZOPARIB. [Suspect]
     Active Substance: TALAZOPARIB
     Indication: NASOPHARYNGEAL CANCER
     Dosage: 1 MG, DAILY (TABLET)
     Route: 048
     Dates: start: 20191019, end: 20191128

REACTIONS (1)
  - Pancytopenia [Recovered/Resolved]

NARRATIVE: CASE EVENT DATE: 201911
